FAERS Safety Report 24936699 (Version 1)
Quarter: 2025Q1

REPORT INFORMATION
  Report Type: Spontaneous
  Country: FR (occurrence: FR)
  Receive Date: 20250206
  Receipt Date: 20250206
  Transmission Date: 20250408
  Serious: Yes (Hospitalization)
  Sender: SANOFI AVENTIS
  Company Number: None

PATIENT
  Age: 84 Year
  Sex: Female
  Weight: 62 kg

DRUGS (29)
  1. LOVENOX [Suspect]
     Active Substance: ENOXAPARIN SODIUM
     Indication: Thrombosis prophylaxis
     Dosage: 6000 UI 8H 20H
     Route: 058
     Dates: start: 20241223, end: 20241227
  2. LOVENOX [Suspect]
     Active Substance: ENOXAPARIN SODIUM
     Dosage: 4000 IU, QD
     Route: 058
     Dates: start: 20241228, end: 20250101
  3. LOVENOX [Suspect]
     Active Substance: ENOXAPARIN SODIUM
     Dosage: 4000 IU, QD
     Route: 058
     Dates: start: 20250101, end: 20250110
  4. CANDESARTAN CILEXETIL [Suspect]
     Active Substance: CANDESARTAN CILEXETIL
     Indication: Hypertension
     Dosage: 16.000MG QD
     Route: 048
     Dates: start: 20241224
  5. NICARDIPINE HYDROCHLORIDE [Suspect]
     Active Substance: NICARDIPINE HYDROCHLORIDE
     Indication: Product used for unknown indication
     Dosage: 60 MG/H CONTINUOUS
     Route: 042
     Dates: start: 20241224, end: 20241226
  6. NICARDIPINE HYDROCHLORIDE [Suspect]
     Active Substance: NICARDIPINE HYDROCHLORIDE
     Dosage: 20 MG EVERY 6H IF BP ?}? 16/10
     Route: 048
     Dates: start: 20241227, end: 20250105
  7. NICARDIPINE HYDROCHLORIDE [Suspect]
     Active Substance: NICARDIPINE HYDROCHLORIDE
     Dosage: 0.5MG/H CONTINUOUS PSE
     Route: 042
     Dates: start: 20250105, end: 20250106
  8. LEVOFLOXACIN [Concomitant]
     Active Substance: LEVOFLOXACIN
     Indication: Staphylococcal bacteraemia
     Dosage: 750.000MG QD
     Route: 048
     Dates: start: 20250103, end: 20250105
  9. LEVOFLOXACIN [Concomitant]
     Active Substance: LEVOFLOXACIN
     Dosage: 750.000MG QD
     Route: 048
     Dates: start: 20250102, end: 20250102
  10. PIPERACILLIN SODIUM\TAZOBACTAM SODIUM [Concomitant]
     Active Substance: PIPERACILLIN SODIUM\TAZOBACTAM SODIUM
     Indication: Staphylococcal bacteraemia
     Dosage: 4 G OVER 30 MINUTES EVERY 8 HOURS
     Route: 042
     Dates: start: 20241224, end: 20241227
  11. RIFAMPIN [Concomitant]
     Active Substance: RIFAMPIN
     Indication: Staphylococcal bacteraemia
     Dosage: 2 300 MG CAPSULES EVERY 6 HOURS
     Route: 048
     Dates: start: 20241229, end: 20250104
  12. VALPROATE SODIUM [Concomitant]
     Active Substance: VALPROATE SODIUM
     Indication: Product used for unknown indication
     Dosage: 750.000MG QD
     Route: 048
     Dates: start: 20250105
  13. VALPROATE SODIUM [Concomitant]
     Active Substance: VALPROATE SODIUM
     Dosage: 250 MG IN THE MORNING AND EVENING
     Route: 048
     Dates: start: 20250104, end: 20250105
  14. VALPROATE SODIUM [Concomitant]
     Active Substance: VALPROATE SODIUM
     Dosage: 250 MG IN THE MORNING, NOON AND EVENING
     Route: 048
     Dates: end: 20250104
  15. OXAZEPAM [Concomitant]
     Active Substance: OXAZEPAM
     Indication: Agitation
     Dosage: 10 MG, QD
     Route: 048
     Dates: start: 20250109
  16. NORMACOL [Concomitant]
     Active Substance: HERBALS\KARAYA GUM
     Indication: Constipation
     Dosage: 1.000DF QD
     Route: 054
     Dates: start: 20250106, end: 20250106
  17. CLINDAMYCIN HYDROCHLORIDE [Concomitant]
     Active Substance: CLINDAMYCIN HYDROCHLORIDE
     Indication: Staphylococcal bacteraemia
     Dosage: 600 MG IN THE MORNING, NOON AND EVENING
     Route: 048
     Dates: start: 20250106, end: 20250116
  18. RISPERDAL [Concomitant]
     Active Substance: RISPERIDONE
     Indication: Product used for unknown indication
     Dosage: 0.5 MG EVERY 8 HOURS
     Route: 048
     Dates: start: 20250104
  19. RISPERDAL [Concomitant]
     Active Substance: RISPERIDONE
     Dosage: 0.25 MG EVERY +H
     Route: 048
     Dates: start: 20250103, end: 20250104
  20. CEFAZOLIN SODIUM [Concomitant]
     Active Substance: CEFAZOLIN SODIUM
     Indication: Staphylococcal bacteraemia
     Dosage: 6G / 24 HOURS CONTINUOUSLY
     Route: 042
     Dates: start: 20241230
  21. CEFAZOLIN SODIUM [Concomitant]
     Active Substance: CEFAZOLIN SODIUM
     Dosage: 2 G EVERY 30 MIN AT 0 AM, 6 AM, 12 PM AND 6 PM
     Route: 042
     Dates: start: 20241228, end: 20241230
  22. CUBICIN [Concomitant]
     Active Substance: DAPTOMYCIN
     Indication: Staphylococcal bacteraemia
     Dosage: 350.000MG QD
     Route: 042
     Dates: start: 20250106, end: 20250106
  23. CUBICIN [Concomitant]
     Active Substance: DAPTOMYCIN
     Dosage: 700.000MG QD
     Route: 042
     Dates: start: 20241227, end: 20241227
  24. CUBICIN [Concomitant]
     Active Substance: DAPTOMYCIN
     Dosage: 300.000MG QD
     Route: 042
     Dates: start: 20241224, end: 20241226
  25. ONDANSETRON [Concomitant]
     Active Substance: ONDANSETRON
     Indication: Product used for unknown indication
     Dosage: 1 AMPOULE EVERY 8 HOURS
     Route: 042
     Dates: start: 20241224, end: 20241225
  26. FUNGIZONE [Concomitant]
     Active Substance: AMPHOTERICIN B
     Indication: Product used for unknown indication
     Dosage: PRODUCT USED FOR UNKNOWN INDICATION
     Route: 048
     Dates: start: 20250101, end: 20250104
  27. FUNGIZONE [Concomitant]
     Active Substance: AMPHOTERICIN B
     Dosage: 1 TEASPOON MORNING, NOON AND EVENING
     Route: 048
     Dates: start: 20241223, end: 20250101
  28. VENLAFAXINE [Concomitant]
     Active Substance: VENLAFAXINE HYDROCHLORIDE
     Indication: Depression
     Dosage: 2 CAPSULES IN THE MORNING
     Route: 048
     Dates: start: 20250104
  29. VENLAFAXINE [Concomitant]
     Active Substance: VENLAFAXINE HYDROCHLORIDE
     Dosage: 2 CAPSULES IN THE MORNING
     Route: 048
     Dates: end: 20250104

REACTIONS (1)
  - Petechiae [Recovering/Resolving]

NARRATIVE: CASE EVENT DATE: 20250104
